FAERS Safety Report 9741500 (Version 1)
Quarter: 2013Q4

REPORT INFORMATION
  Report Type: Spontaneous
  Country: CZ (occurrence: CZ)
  Receive Date: 20131209
  Receipt Date: 20131209
  Transmission Date: 20140711
  Serious: Yes (Disabling)
  Sender: FDA-Public Use
  Company Number: CZ-MYLANLABS-2013S1027102

PATIENT
  Age: 7 Decade
  Sex: Male

DRUGS (7)
  1. DOCETAXEL [Suspect]
     Indication: PROSTATE CANCER METASTATIC
     Route: 065
  2. GABAPENTIN [Suspect]
     Indication: NEURALGIA
     Dosage: INCREASED TO 600MG 3X DAILY
     Route: 065
  3. GABAPENTIN [Suspect]
     Indication: NEURALGIA
     Route: 065
  4. AMITRIPTYLINE [Suspect]
     Indication: NEURALGIA
     Dosage: AT NIGHT; INCREASED TO 75MG AT NIGHT
     Route: 048
  5. AMITRIPTYLINE [Suspect]
     Indication: NEURALGIA
     Dosage: AT NIGHT
     Route: 048
  6. PREDNISONE [Concomitant]
     Indication: PROSTATE CANCER METASTATIC
     Route: 048
  7. FENTANYL [Concomitant]
     Indication: NEURALGIA
     Dosage: 25 MICROG/H
     Route: 062

REACTIONS (7)
  - Neuralgia [Recovered/Resolved]
  - Polyneuropathy [Recovered/Resolved]
  - Visual acuity reduced [Unknown]
  - Depression [Unknown]
  - Hypertension [Unknown]
  - Gastrointestinal disorder [Unknown]
  - Orthostatic hypotension [Unknown]
